FAERS Safety Report 8217092-4 (Version None)
Quarter: 2012Q1

REPORT INFORMATION
  Report Type: 
  Country: None (occurrence: None)
  Receive Date: 20120319
  Receipt Date: 20120312
  Transmission Date: 20120608
  Serious: No
  Sender: FDA-Public Use
  Company Number: US-BIOGENIDEC-2012BI008993

PATIENT
  Age: 45 Year
  Sex: Female

DRUGS (3)
  1. AVONEX [Concomitant]
     Indication: MULTIPLE SCLEROSIS
     Route: 030
  2. TYSABRI [Suspect]
     Indication: MULTIPLE SCLEROSIS
     Route: 042
     Dates: start: 20071001, end: 20090910
  3. TYSABRI [Suspect]
     Route: 042
     Dates: start: 20100702

REACTIONS (5)
  - FATIGUE [None]
  - VEIN DISCOLOURATION [None]
  - OEDEMA PERIPHERAL [None]
  - DIZZINESS [None]
  - INSOMNIA [None]
